FAERS Safety Report 7714019-6 (Version None)
Quarter: 2011Q3

REPORT INFORMATION
  Report Type: 
  Country: None (occurrence: None)
  Receive Date: 20110826
  Receipt Date: 20110811
  Transmission Date: 20111222
  Serious: Yes (Other)
  Sender: FDA-Public Use
  Company Number: IR-WATSON-2011-13335

PATIENT
  Age: 17 Year
  Sex: Male

DRUGS (1)
  1. PREDNISONE [Suspect]
     Indication: ADDISON'S DISEASE
     Dosage: 7.5 MG, DAILY
     Route: 065

REACTIONS (1)
  - BREAST ENLARGEMENT [None]
